FAERS Safety Report 13059692 (Version 2)
Quarter: 2017Q1

REPORT INFORMATION
  Report Type: Spontaneous
  Country: US (occurrence: US)
  Receive Date: 20161223
  Receipt Date: 20170109
  Transmission Date: 20170428
  Serious: Yes (Death, Hospitalization)
  Sender: FDA-Public Use
  Company Number: US-FRESENIUS MEDICAL CARE RENAL THERAPIES GROUP-FMC-1612-001602

PATIENT
  Age: 86 Year
  Sex: Female
  Weight: 86 kg

DRUGS (6)
  1. LOSARTAN. [Concomitant]
     Active Substance: LOSARTAN
  2. GABAPENTIN. [Concomitant]
     Active Substance: GABAPENTIN
  3. EPOGEN [Concomitant]
     Active Substance: ERYTHROPOIETIN
  4. ROPINIROLE. [Concomitant]
     Active Substance: ROPINIROLE
  5. DELFLEX [Suspect]
     Active Substance: CALCIUM CHLORIDE\DEXTROSE\MAGNESIUM CHLORIDE\SODIUM CHLORIDE\SODIUM LACTATE
     Indication: END STAGE RENAL DISEASE
     Route: 033
  6. CALCITRIOL. [Concomitant]
     Active Substance: CALCITRIOL

REACTIONS (2)
  - Cardiac arrest [Fatal]
  - Ventricular fibrillation [None]

NARRATIVE: CASE EVENT DATE: 20161114
